FAERS Safety Report 12144235 (Version 1)
Quarter: 2016Q1

REPORT INFORMATION
  Report Type: Spontaneous
  Country: US (occurrence: None)
  Receive Date: 20160303
  Receipt Date: 20160303
  Transmission Date: 20160526
  Serious: No
  Sender: FDA-Public Use
  Company Number: None

PATIENT

DRUGS (1)
  1. BUPROPION. [Suspect]
     Active Substance: BUPROPION
     Indication: DEPRESSION
     Dosage: 1 PILL FOR 1 WEEK THEN 2 PILLS 2 PILLS EVERY MORNING BY MOUTH
     Route: 048
     Dates: start: 20150721, end: 20150928

REACTIONS (21)
  - Chest pain [None]
  - Dry skin [None]
  - Vertigo [None]
  - Amnesia [None]
  - Tremor [None]
  - Hyporesponsive to stimuli [None]
  - Speech disorder [None]
  - Pain in extremity [None]
  - Cognitive disorder [None]
  - Tinnitus [None]
  - Depression [None]
  - Tenderness [None]
  - Protrusion tongue [None]
  - Gait disturbance [None]
  - Eating disorder [None]
  - Asthenia [None]
  - Ageusia [None]
  - Anosmia [None]
  - Tardive dyskinesia [None]
  - Food aversion [None]
  - Impaired work ability [None]
